FAERS Safety Report 7498539-8 (Version None)
Quarter: 2011Q2

REPORT INFORMATION
  Report Type: 
  Country: None (occurrence: None)
  Receive Date: 20110524
  Receipt Date: 20090213
  Transmission Date: 20111010
  Serious: Yes (Death, Hospitalization, Other)
  Sender: FDA-Public Use
  Company Number: US-BAYER-200912897NA

PATIENT
  Age: 76 Year
  Sex: Male
  Weight: 77 kg

DRUGS (10)
  1. TRASYLOL [Suspect]
     Indication: MITRAL VALVE REPLACEMENT
  2. TRASYLOL [Suspect]
     Indication: AORTIC VALVE REPLACEMENT
  3. ANCEF [Concomitant]
     Dosage: 2 MG, UNK
     Route: 042
  4. HEPARIN [Concomitant]
  5. TRASYLOL [Suspect]
     Indication: INTRA-AORTIC BALLOON PLACEMENT
  6. VERSED [Concomitant]
     Dosage: 2 MG, UNK
     Route: 042
  7. TRASYLOL [Suspect]
     Indication: CORONARY ARTERY BYPASS
     Dosage: 100 CC PUMP PRIME,
     Route: 042
     Dates: start: 20000602
  8. LASIX [Concomitant]
     Dosage: 10 MG, UNK
  9. DOPAMINE HCL [Concomitant]
  10. MANNITOL [Concomitant]

REACTIONS (5)
  - RENAL FAILURE ACUTE [None]
  - PAIN [None]
  - RENAL FAILURE [None]
  - UNEVALUABLE EVENT [None]
  - INJURY [None]
